FAERS Safety Report 18642852 (Version 1)
Quarter: 2020Q4

REPORT INFORMATION
  Report Type: Spontaneous
  Country: DE (occurrence: DE)
  Receive Date: 20201221
  Receipt Date: 20201221
  Transmission Date: 20210114
  Serious: No
  Sender: FDA-Public Use
  Company Number: DE-LUPIN PHARMACEUTICALS INC.-2020-05737

PATIENT
  Age: 42 Year
  Sex: Male

DRUGS (10)
  1. PANTOPRAZOLE [Suspect]
     Active Substance: PANTOPRAZOLE
     Indication: PRODUCT USED FOR UNKNOWN INDICATION
     Dosage: UNK
     Route: 065
  2. INSULIN GLARGINE [Suspect]
     Active Substance: INSULIN GLARGINE
     Indication: PRODUCT USED FOR UNKNOWN INDICATION
     Dosage: UNK
     Route: 065
  3. INSULIN LISPRO [Suspect]
     Active Substance: INSULIN LISPRO
     Indication: PRODUCT USED FOR UNKNOWN INDICATION
     Dosage: UNK
     Route: 065
  4. PERAZINE [Suspect]
     Active Substance: PERAZINE
     Indication: PSYCHOTIC DISORDER
     Dosage: 200 MILLIGRAM, QD
     Route: 065
  5. METOPROLOL. [Suspect]
     Active Substance: METOPROLOL
     Indication: PRODUCT USED FOR UNKNOWN INDICATION
     Dosage: UNK
     Route: 065
  6. LENTE INSULIN NOS [Suspect]
     Active Substance: INSULIN NOS
     Indication: PRODUCT USED FOR UNKNOWN INDICATION
     Dosage: UNK
     Route: 065
  7. PIPAMPERONE [Suspect]
     Active Substance: PIPAMPERONE
     Indication: PSYCHOTIC DISORDER
     Dosage: 60 MILLIGRAM, QD
     Route: 065
  8. RAMIPRIL. [Suspect]
     Active Substance: RAMIPRIL
     Indication: PRODUCT USED FOR UNKNOWN INDICATION
     Dosage: UNK
     Route: 065
  9. VENLAFAXINE [Suspect]
     Active Substance: VENLAFAXINE HYDROCHLORIDE
     Indication: MAJOR DEPRESSION
     Dosage: 300 MILLIGRAM, QD
     Route: 065
  10. TRIMIPRAMINE [Suspect]
     Active Substance: TRIMIPRAMINE
     Indication: MAJOR DEPRESSION
     Dosage: 50 MILLIGRAM, QD
     Route: 065

REACTIONS (2)
  - Aspartate aminotransferase increased [Recovered/Resolved]
  - Alanine aminotransferase increased [Recovered/Resolved]
